FAERS Safety Report 8652358 (Version 3)
Quarter: 2012Q4

REPORT INFORMATION
  Report Type: 
  Country: FR (occurrence: FR)
  Receive Date: 20120706
  Receipt Date: 20121211
  Transmission Date: 20130627
  Serious: Yes (Hospitalization)
  Sender: FDA-Public Use
  Company Number: FR-ROCHE-1084796

PATIENT
  Sex: Male

DRUGS (6)
  1. CELLCEPT [Suspect]
     Indication: PRODUCT USED FOR UNKNOWN INDICATION
     Route: 048
     Dates: start: 20110820
  2. CERTICAN [Suspect]
     Indication: PRODUCT USED FOR UNKNOWN INDICATION
     Route: 048
     Dates: start: 20120529, end: 20120620
  3. NEORAL [Concomitant]
     Route: 065
  4. NEORAL [Concomitant]
     Route: 065
  5. ROVALCYTE [Concomitant]
     Route: 065
     Dates: start: 20120529
  6. RUBOZINC [Concomitant]
     Route: 065
     Dates: start: 20120529

REACTIONS (2)
  - Anal ulcer [Recovered/Resolved]
  - Mouth ulceration [Recovered/Resolved]
